FAERS Safety Report 7492105-6 (Version None)
Quarter: 2011Q2

REPORT INFORMATION
  Report Type: 
  Country: None (occurrence: None)
  Receive Date: 20110512
  Receipt Date: 20110502
  Transmission Date: 20111010
  Serious: Yes (Hospitalization)
  Sender: FDA-Public Use
  Company Number: 11US002103

PATIENT
  Age: 58 Year
  Sex: Female

DRUGS (2)
  1. MULTI-VITAMIN [Suspect]
     Indication: ROUTINE HEALTH MAINTENANCE
     Dosage: 1 TABLET,QD,ORAL
     Route: 048
     Dates: start: 20110221, end: 20110228
  2. MULTI-VITAMIN [Suspect]
     Indication: VITAMIN SUPPLEMENTATION
     Dosage: 1 TABLET,QD,ORAL
     Route: 048
     Dates: start: 20110221, end: 20110228

REACTIONS (13)
  - NERVOUSNESS [None]
  - DEHYDRATION [None]
  - HEADACHE [None]
  - HYPERSENSITIVITY [None]
  - DIZZINESS [None]
  - PARAESTHESIA [None]
  - URINE SODIUM INCREASED [None]
  - DYSPEPSIA [None]
  - HYPERTENSION [None]
  - CHEST PAIN [None]
  - FATIGUE [None]
  - DYSGEUSIA [None]
  - BLOOD SODIUM INCREASED [None]
